FAERS Safety Report 13375917 (Version 2)
Quarter: 2017Q2

REPORT INFORMATION
  Report Type: Report from Study
  Country: US (occurrence: US)
  Receive Date: 20170328
  Receipt Date: 20170620
  Transmission Date: 20170830
  Serious: Yes (Hospitalization)
  Sender: FDA-Public Use
  Company Number: US-ACTELION-A-US2017-148335

PATIENT
  Age: 60 Year
  Sex: Male
  Weight: 70.3 kg

DRUGS (3)
  1. WARFARIN [Concomitant]
     Active Substance: WARFARIN
  2. REVATIO [Concomitant]
     Active Substance: SILDENAFIL CITRATE
     Dosage: 20 MG, TID
  3. OPSUMIT [Suspect]
     Active Substance: MACITENTAN
     Indication: PULMONARY ARTERIAL HYPERTENSION
     Dosage: 10 MG, QD
     Route: 048
     Dates: start: 20161213

REACTIONS (15)
  - Swelling face [Unknown]
  - Exercise tolerance decreased [Unknown]
  - Fatigue [Unknown]
  - Cough [Unknown]
  - Oedema peripheral [Unknown]
  - Ascites [Unknown]
  - Dyspnoea exertional [Unknown]
  - Oropharyngeal pain [Unknown]
  - Atrial fibrillation [Unknown]
  - Dyspnoea [Recovering/Resolving]
  - Presyncope [Unknown]
  - Dizziness [Unknown]
  - Oedema [Unknown]
  - Syncope [Unknown]
  - Secretion discharge [Unknown]
